FAERS Safety Report 20724147 (Version 1)
Quarter: 2022Q2

REPORT INFORMATION
  Report Type: Spontaneous
  Country: US (occurrence: US)
  Receive Date: 20220419
  Receipt Date: 20220419
  Transmission Date: 20220721
  Serious: Yes (Hospitalization)
  Sender: FDA-Public Use
  Company Number: US-PBT-004503

PATIENT
  Age: 14 Year
  Sex: Male

DRUGS (6)
  1. TACROLIMUS [Interacting]
     Active Substance: TACROLIMUS
     Indication: Prophylaxis against transplant rejection
     Route: 065
  2. IVACAFTOR [Interacting]
     Active Substance: IVACAFTOR
     Indication: Cystic fibrosis
     Route: 065
     Dates: start: 201911
  3. TEZACAFTOR [Interacting]
     Active Substance: TEZACAFTOR
     Indication: Product used for unknown indication
     Route: 065
     Dates: start: 201911
  4. TACROLIMUS [Interacting]
     Active Substance: TACROLIMUS
     Indication: Prophylaxis against transplant rejection
     Route: 065
  5. IVACAFTOR [Interacting]
     Active Substance: IVACAFTOR
     Indication: Product used for unknown indication
     Route: 065
     Dates: start: 201911
  6. TEZACAFTOR [Interacting]
     Active Substance: TEZACAFTOR
     Indication: Product used for unknown indication
     Route: 065

REACTIONS (4)
  - Hypertransaminasaemia [Recovered/Resolved]
  - Drug interaction [Unknown]
  - Liver function test increased [Unknown]
  - Blood bilirubin increased [Unknown]
